FAERS Safety Report 6404772-6 (Version None)
Quarter: 2009Q4

REPORT INFORMATION
  Report Type: 
  Country: None (occurrence: None)
  Receive Date: 20091016
  Receipt Date: 20091006
  Transmission Date: 20100525
  Serious: Yes (Other)
  Sender: FDA-Public Use
  Company Number: US-PURDUE-USA_2008_0031743

PATIENT
  Sex: Female

DRUGS (2)
  1. OXYCONTIN [Suspect]
     Indication: BACK INJURY
     Dosage: UNK
     Dates: start: 20001001
  2. OXYCONTIN [Suspect]
     Indication: BACK PAIN

REACTIONS (11)
  - ANHEDONIA [None]
  - ANXIETY [None]
  - DRUG DEPENDENCE [None]
  - GENERAL PHYSICAL HEALTH DETERIORATION [None]
  - MOOD SWINGS [None]
  - PAIN [None]
  - PERSONALITY CHANGE [None]
  - PHYSICAL ABUSE [None]
  - SUICIDAL IDEATION [None]
  - SURGERY [None]
  - VERBAL ABUSE [None]
